FAERS Safety Report 25389603 (Version 1)
Quarter: 2025Q2

REPORT INFORMATION
  Report Type: Report from Study
  Country: CA (occurrence: CA)
  Receive Date: 20250603
  Receipt Date: 20250603
  Transmission Date: 20250717
  Serious: Yes (Other)
  Sender: CURRAX PHARMACEUTICALS
  Company Number: CA-BAUSCH-BL-2025-003402

PATIENT
  Age: 56 Year
  Sex: Female

DRUGS (9)
  1. CONTRAVE [Suspect]
     Active Substance: BUPROPION HYDROCHLORIDE\NALTREXONE HYDROCHLORIDE
     Indication: Weight control
     Dosage: 90/8 MG, 1 TAB/DAILY (FIRST ATTEMPT)
     Route: 048
     Dates: start: 20250305, end: 202504
  2. CONTRAVE [Suspect]
     Active Substance: BUPROPION HYDROCHLORIDE\NALTREXONE HYDROCHLORIDE
     Dosage: 90/8 MG, (SECOND ATTEMPT) 1ST WEEK (1 DOSAGE FORMS,1 IN 1 D)
     Route: 048
     Dates: start: 20250505, end: 20250511
  3. CONTRAVE [Suspect]
     Active Substance: BUPROPION HYDROCHLORIDE\NALTREXONE HYDROCHLORIDE
     Dosage: 90/8 MG, (SECOND ATTEMPT) 2ND WEEK (1 DOSAGE FORMS,1 IN 12 HR)
     Route: 048
     Dates: start: 20250512, end: 20250518
  4. CONTRAVE [Suspect]
     Active Substance: BUPROPION HYDROCHLORIDE\NALTREXONE HYDROCHLORIDE
     Dosage: 90/8 MG, (SECOND ATTEMPT) 3RD WEEK (1 IN 12 HR)
     Route: 048
     Dates: start: 20250519
  5. SYNTHROID [Concomitant]
     Active Substance: LEVOTHYROXINE SODIUM
     Indication: Thyroid disorder
     Dosage: THERAPY START DATE-30 YEARS AGO (137 MICROMOLE PER GRAM,1 IN 1 D)
     Route: 048
  6. IRBESARTAN [Concomitant]
     Active Substance: IRBESARTAN
     Indication: Blood pressure measurement
     Dosage: THERAPY START DATE- 2 YEARS AGO (75 MG,1 IN 1 D)
     Route: 048
  7. VITAMIN D [Concomitant]
     Active Substance: VITAMIN D NOS
     Indication: General physical health deterioration
     Dosage: THERAPY START DATE-5 YEARS AGO (10000 IU,1 IN 1 WK)
     Route: 048
  8. ROSUVASTATIN [Concomitant]
     Active Substance: ROSUVASTATIN
     Indication: Blood cholesterol
     Dosage: THERAPY START DATE- 6 MONTHS (5 MG,1 IN 1 D)
     Route: 048
  9. PREGABALIN [Concomitant]
     Active Substance: PREGABALIN
     Indication: Neuralgia
     Dosage: THERAPY START DATE- 7-8 YEARS AGO (150 MG,1 IN 12 HR)
     Route: 048

REACTIONS (13)
  - Shoulder operation [Unknown]
  - Tearfulness [Recovered/Resolved]
  - Gastrooesophageal reflux disease [Unknown]
  - Condition aggravated [Unknown]
  - Dyspepsia [Not Recovered/Not Resolved]
  - Abdominal discomfort [Not Recovered/Not Resolved]
  - Depressed mood [Recovered/Resolved]
  - Nausea [Recovered/Resolved]
  - Inability to afford medication [Unknown]
  - Contraindicated product prescribed [Unknown]
  - Contraindicated product administered [Unknown]
  - Labelled drug-drug interaction issue [Unknown]
  - Intentional product use issue [Unknown]

NARRATIVE: CASE EVENT DATE: 20250306
